FAERS Safety Report 7806034-9 (Version None)
Quarter: 2011Q4

REPORT INFORMATION
  Report Type: 
  Country: None (occurrence: None)
  Receive Date: 20111011
  Receipt Date: 20111003
  Transmission Date: 20120403
  Serious: Yes (Other)
  Sender: FDA-Public Use
  Company Number: US-AMGEN-USASP2011048703

PATIENT
  Age: 36 Year
  Sex: Female
  Weight: 80.272 kg

DRUGS (11)
  1. XGEVA [Concomitant]
     Indication: METASTASES TO BONE
     Dosage: 120 MG, Q4WK
     Route: 058
     Dates: start: 20110816
  2. TYLENOL (CAPLET) [Concomitant]
  3. OXYCODONE HCL [Concomitant]
     Indication: BONE PAIN
     Dosage: 10 MG, PRN
     Route: 048
     Dates: start: 20110201
  4. DECADRON [Concomitant]
     Indication: ANTIEMETIC SUPPORTIVE CARE
     Dosage: 10 MG, QWK
     Route: 042
     Dates: start: 20110701
  5. FENTANYL [Concomitant]
     Indication: BONE PAIN
     Dosage: 100 MUG, UNK
     Route: 061
     Dates: start: 20110201
  6. NPLATE [Suspect]
     Indication: IDIOPATHIC THROMBOCYTOPENIC PURPURA
     Dosage: 3.75 MUG/KG, UNK
     Route: 058
     Dates: start: 20110805
  7. CARBOPLATIN [Concomitant]
     Indication: BREAST CANCER METASTATIC
     Dosage: UNK UNK, QWK
     Route: 042
     Dates: start: 20110721
  8. ALOXI [Concomitant]
     Dosage: .25 MG, QWK
     Route: 042
  9. EFFEXOR [Concomitant]
     Indication: DEPRESSION
     Dosage: 375 MG, QD
     Route: 048
  10. IMMUNOGLOBULINS [Concomitant]
     Indication: IDIOPATHIC THROMBOCYTOPENIC PURPURA
  11. BENADRYL [Concomitant]
     Dosage: 25 MG, QWK
     Route: 042

REACTIONS (9)
  - NEOPLASM MALIGNANT [None]
  - RASH [None]
  - VOMITING [None]
  - OEDEMA PERIPHERAL [None]
  - BONE PAIN [None]
  - PANCYTOPENIA [None]
  - HEADACHE [None]
  - DEEP VEIN THROMBOSIS [None]
  - PAIN IN EXTREMITY [None]
